FAERS Safety Report 5807908-0 (Version None)
Quarter: 2008Q3

REPORT INFORMATION
  Report Type: 
  Country: None (occurrence: None)
  Receive Date: 20080711
  Receipt Date: 20080221
  Transmission Date: 20090109
  Serious: Yes (Death, Other)
  Sender: FDA-Public Use
  Company Number: BR-PFIZER INC-2008017064

PATIENT
  Sex: Male

DRUGS (1)
  1. LIPITOR [Suspect]
     Indication: BLOOD CHOLESTEROL INCREASED
     Route: 048
     Dates: start: 19980101, end: 20070801

REACTIONS (6)
  - BLINDNESS [None]
  - DEATH [None]
  - DIABETES MELLITUS [None]
  - PLEURAL EFFUSION [None]
  - RENAL IMPAIRMENT [None]
  - VASCULAR GRAFT [None]
